FAERS Safety Report 7528671-1 (Version None)
Quarter: 2011Q2

REPORT INFORMATION
  Report Type: 
  Country: None (occurrence: None)
  Receive Date: 20110607
  Receipt Date: 20040610
  Transmission Date: 20111010
  Serious: Yes (Death)
  Sender: FDA-Public Use
  Company Number: PHHO2004NZ08495

PATIENT
  Sex: Female

DRUGS (3)
  1. TERAZOSIN [Concomitant]
     Dosage: 2 MG, NOCTE
  2. CLOZARIL [Suspect]
     Indication: SCHIZOPHRENIA
     Dosage: 400 MG, QD
     Route: 048
     Dates: start: 20031215
  3. BENZTROPINE MESYLATE [Concomitant]
     Dosage: 2.5 MG, MANE

REACTIONS (1)
  - MYOCARDIAL INFARCTION [None]
